FAERS Safety Report 19643903 (Version 4)
Quarter: 2022Q2

REPORT INFORMATION
  Report Type: Report from Study
  Country: US (occurrence: US)
  Receive Date: 20210731
  Receipt Date: 20220426
  Transmission Date: 20220721
  Serious: No
  Sender: FDA-Public Use
  Company Number: US-NOVARTISTESTPH-NVSC2021US167352

PATIENT
  Sex: Male
  Weight: 129.25 kg

DRUGS (7)
  1. TREPROSTINIL [Suspect]
     Active Substance: TREPROSTINIL
     Indication: Pulmonary arterial hypertension
     Dosage: 60 NG/KG/MIN,CONT
     Route: 058
     Dates: start: 20210607
  2. TREPROSTINIL [Suspect]
     Active Substance: TREPROSTINIL
     Dosage: 24 NG/KG/MIN, CONT
     Route: 058
     Dates: start: 20210706
  3. TREPROSTINIL [Suspect]
     Active Substance: TREPROSTINIL
     Dosage: 60NG/KG/MIN,CONT
     Route: 058
     Dates: start: 20210706
  4. REMODULIN [Concomitant]
     Active Substance: TREPROSTINIL
     Indication: Product used for unknown indication
     Dosage: UNK
     Route: 065
  5. WARFARIN [Concomitant]
     Active Substance: WARFARIN
     Indication: Product used for unknown indication
     Dosage: UNK
     Route: 065
  6. SILDENAFIL CITRATE [Concomitant]
     Active Substance: SILDENAFIL CITRATE
     Indication: Product used for unknown indication
     Dosage: UNK
     Route: 065
  7. DIETARY SUPPLEMENT [Concomitant]
     Active Substance: DIETARY SUPPLEMENT
     Indication: Product used for unknown indication
     Dosage: UNK
     Route: 065

REACTIONS (11)
  - Injection site haemorrhage [Unknown]
  - Skin discolouration [Unknown]
  - Peripheral swelling [Unknown]
  - Injection site bruising [Unknown]
  - Pain in extremity [Unknown]
  - Injection site discomfort [Unknown]
  - Injection site induration [Unknown]
  - Dermatitis contact [Unknown]
  - Oedema [Unknown]
  - Administration site pain [Unknown]
  - Headache [Unknown]
